FAERS Safety Report 10399596 (Version 1)
Quarter: 2014Q3

REPORT INFORMATION
  Report Type: Spontaneous
  Country: RU (occurrence: RU)
  Receive Date: 20140821
  Receipt Date: 20140821
  Transmission Date: 20150326
  Serious: Yes (Life-Threatening, Hospitalization)
  Sender: FDA-Public Use
  Company Number: RU-BAYER-2014-120038

PATIENT
  Age: 32 Year
  Sex: Female
  Weight: 64.85 kg

DRUGS (1)
  1. QLAIRA [Suspect]
     Active Substance: DIENOGEST\ESTRADIOL VALERATE
     Indication: CONTRACEPTION
     Dosage: 1 DF, UNK
     Route: 048
     Dates: start: 201401, end: 20140725

REACTIONS (8)
  - Haemoglobin decreased [None]
  - Ectopic pregnancy under hormonal contraception [Recovering/Resolving]
  - Metrorrhagia [None]
  - Peritoneal haemorrhage [None]
  - Drug ineffective [None]
  - Abdominal pain lower [None]
  - Endometriosis [None]
  - Pelvic organ injury [None]

NARRATIVE: CASE EVENT DATE: 20140725
